FAERS Safety Report 12207663 (Version 1)
Quarter: 2016Q1

REPORT INFORMATION
  Report Type: Report from Study
  Country: US (occurrence: US)
  Receive Date: 20160324
  Receipt Date: 20160324
  Transmission Date: 20160526
  Serious: Yes (Other)
  Sender: FDA-Public Use
  Company Number: US-BAYER-2016-052188

PATIENT
  Age: 55 Year
  Sex: Female

DRUGS (1)
  1. BETASERON [Suspect]
     Active Substance: INTERFERON BETA-1B
     Indication: MULTIPLE SCLEROSIS
     Dosage: 2 MIU, QOD
     Route: 058
     Dates: start: 20160225, end: 201603

REACTIONS (6)
  - Fall [Recovered/Resolved]
  - Circulatory collapse [Recovered/Resolved]
  - Haemorrhage [Recovered/Resolved]
  - Urinary incontinence [Recovered/Resolved]
  - Mobility decreased [Recovered/Resolved]
  - Somatic delusion [None]

NARRATIVE: CASE EVENT DATE: 20160225
